FAERS Safety Report 9985164 (Version 3)
Quarter: 2014Q1

REPORT INFORMATION
  Report Type: Spontaneous
  Country: US (occurrence: US)
  Receive Date: 20140307
  Receipt Date: 20140331
  Transmission Date: 20141002
  Serious: Yes (Hospitalization)
  Sender: FDA-Public Use
  Company Number: US-ACTELION-A-NJ2012-59270

PATIENT
  Age: 68 Year
  Sex: Female

DRUGS (5)
  1. TRACLEER [Suspect]
     Indication: PULMONARY ARTERIAL HYPERTENSION
     Dosage: UNK
     Route: 048
     Dates: start: 20111207
  2. REVATIO [Concomitant]
  3. TYVASO [Concomitant]
  4. REMODULIN [Concomitant]
  5. FLOLAN [Concomitant]

REACTIONS (6)
  - Sinusitis [Unknown]
  - Paranasal sinus hypersecretion [Unknown]
  - Device breakage [Recovered/Resolved]
  - Lung disorder [Unknown]
  - Chest discomfort [Unknown]
  - Blood pressure decreased [Unknown]
